FAERS Safety Report 16296339 (Version 2)
Quarter: 2019Q3

REPORT INFORMATION
  Report Type: Report from Study
  Country: US (occurrence: US)
  Receive Date: 20190510
  Receipt Date: 20190715
  Transmission Date: 20191004
  Serious: Yes (Other)
  Sender: FDA-Public Use
  Company Number: US-BAYER-2019-064355

PATIENT
  Age: 58 Year
  Sex: Female

DRUGS (8)
  1. NEXAVAR [Suspect]
     Active Substance: SORAFENIB
     Indication: SOFT TISSUE NEOPLASM
     Dosage: 400 MG, BID
     Route: 048
     Dates: end: 20190501
  2. NEXAVAR [Suspect]
     Active Substance: SORAFENIB
     Indication: CONNECTIVE TISSUE NEOPLASM
     Dosage: 400 MG, BID
     Route: 048
     Dates: start: 2019
  3. CETAPHIL [CETYL ALCOHOL;PROPYLENE GLYCOL;SODIUM LAURYL SULFATE;STE [Concomitant]
  4. ATORVASTATIN CALCIUM. [Concomitant]
     Active Substance: ATORVASTATIN CALCIUM
  5. MECLIZINE [Concomitant]
     Active Substance: MECLIZINE HYDROCHLORIDE
     Dosage: UNK
  6. NEXAVAR [Suspect]
     Active Substance: SORAFENIB
     Indication: IRON DEFICIENCY ANAEMIA
     Dosage: DAILY DOSE 200 MG
     Route: 048
     Dates: start: 20190320, end: 2019
  7. RAMIPRIL. [Concomitant]
     Active Substance: RAMIPRIL
  8. VENLAFAXINE HYDROCHLORIDE. [Concomitant]
     Active Substance: VENLAFAXINE HYDROCHLORIDE
     Dosage: UNK

REACTIONS (11)
  - Product use in unapproved indication [None]
  - Blister [Unknown]
  - Fatigue [Not Recovered/Not Resolved]
  - Gait inability [None]
  - Palmar-plantar erythrodysaesthesia syndrome [Recovering/Resolving]
  - Palmar-plantar erythrodysaesthesia syndrome [Not Recovered/Not Resolved]
  - Swelling face [Not Recovered/Not Resolved]
  - Dysstasia [Not Recovered/Not Resolved]
  - Erythema [Not Recovered/Not Resolved]
  - Oral mucosal blistering [Unknown]
  - Off label use [None]

NARRATIVE: CASE EVENT DATE: 2019
